FAERS Safety Report 23603263 (Version 4)
Quarter: 2024Q1

REPORT INFORMATION
  Report Type: Report from Study
  Country: US (occurrence: US)
  Receive Date: 20240307
  Receipt Date: 20240315
  Transmission Date: 20240410
  Serious: Yes (Hospitalization, Other)
  Sender: FDA-Public Use
  Company Number: US-ABBVIE-5661362

PATIENT
  Age: 67 Year
  Sex: Female

DRUGS (26)
  1. VENCLEXTA [Suspect]
     Active Substance: VENETOCLAX
     Indication: Pancytopenia
     Dosage: FOR 28 DAYS,FORM STRENGTH: 100 MG, 3 WEEKS ON / 1 WEEK OF
     Route: 048
     Dates: start: 20240304, end: 20240304
  2. VENCLEXTA [Suspect]
     Active Substance: VENETOCLAX
     Indication: Pancytopenia
     Route: 048
     Dates: start: 20240306
  3. VENCLEXTA [Suspect]
     Active Substance: VENETOCLAX
     Indication: Pancytopenia
     Dosage: STRENGTH: 200 MG, 200MG ONCE X ONE DAY THEN TITRATE UP
     Route: 048
     Dates: start: 20240305, end: 20240305
  4. VENCLEXTA [Suspect]
     Active Substance: VENETOCLAX
     Indication: Pancytopenia
     Dosage: 4 TABLET(S) BY MOUTH ONCE DAILY
     Route: 048
  5. VENCLEXTA [Suspect]
     Active Substance: VENETOCLAX
     Indication: Pancytopenia
     Dosage: STRENGTH: 100 MG
     Route: 048
     Dates: start: 20220223, end: 202203
  6. COREG [Concomitant]
     Active Substance: CARVEDILOL
     Indication: Product used for unknown indication
  7. ELIQUIS [Concomitant]
     Active Substance: APIXABAN
     Indication: Thrombosis
  8. NAPROXEN [Concomitant]
     Active Substance: NAPROXEN
     Indication: Product used for unknown indication
  9. TYLENOL [Concomitant]
     Active Substance: ACETAMINOPHEN
     Indication: Product used for unknown indication
  10. CLARITIN [Concomitant]
     Active Substance: LORATADINE
     Indication: Product used for unknown indication
     Dosage: STRENGTH: 10 MG
     Route: 048
     Dates: start: 20240221, end: 20240222
  11. VIDAZA [Concomitant]
     Active Substance: AZACITIDINE
     Indication: Plasma cell myeloma
     Dates: start: 202202
  12. VIDAZA [Concomitant]
     Active Substance: AZACITIDINE
     Indication: Plasma cell myeloma
     Dates: start: 20240304
  13. VIDAZA [Concomitant]
     Active Substance: AZACITIDINE
     Indication: Plasma cell myeloma
     Dosage: 3 WEEKS ON / 1 WEEK OF ) ON 23-FEB-2022
     Dates: start: 20220223, end: 202310
  14. VALTREX [Concomitant]
     Active Substance: VALACYCLOVIR HYDROCHLORIDE
     Indication: Product used for unknown indication
     Dosage: TAKE 1 TAB BY MOUTH IN THE MORNING AND 1 TAB IN THE EVENING, STRENGTH: 500 MG
     Route: 048
     Dates: start: 20240221, end: 20240222
  15. EVENITY [Concomitant]
     Active Substance: ROMOSOZUMAB-AQQG
     Indication: Product used for unknown indication
     Dates: start: 202310
  16. AZACITIDINE [Concomitant]
     Active Substance: AZACITIDINE
     Indication: Product used for unknown indication
     Dosage: 32 MG /2 D1-5 Q 28 DAYS
  17. LEVAQUIN [Concomitant]
     Active Substance: LEVOFLOXACIN
     Indication: Product used for unknown indication
     Dosage: STRENGTH: 500 MG
     Route: 048
     Dates: start: 20240221, end: 20240222
  18. PROCRIT [Concomitant]
     Active Substance: ERYTHROPOIETIN
     Indication: Product used for unknown indication
     Dosage: 40,000 WEEKLY GIVEN 2 DOSES
     Dates: start: 202106
  19. ZYLOPRIM [Concomitant]
     Active Substance: ALLOPURINOL
     Indication: Product used for unknown indication
     Dosage: STRENGTH: 300 MG
     Route: 048
     Dates: start: 20240221, end: 20240222
  20. TACROLIMUS [Concomitant]
     Active Substance: TACROLIMUS
     Indication: Product used for unknown indication
     Dosage: STRENGTH: 0.5 MG
  21. ZOFRAN [Concomitant]
     Active Substance: ONDANSETRON HYDROCHLORIDE
     Indication: Nausea
     Dosage: 1 TAB BY MOUTH EVERY 12 HOURS AS NEEDED FOR NAUSEA, STRENGTH: 4 MG
     Route: 048
     Dates: start: 20240221
  22. LIOTHYRONINE [Concomitant]
     Active Substance: LIOTHYRONINE
     Indication: Product used for unknown indication
     Dates: start: 202311
  23. NEUPOGEN [Concomitant]
     Active Substance: FILGRASTIM
     Indication: Product used for unknown indication
  24. ZOMETA [Concomitant]
     Active Substance: ZOLEDRONIC ACID
     Indication: Product used for unknown indication
  25. PREDNISONE [Concomitant]
     Active Substance: PREDNISONE
     Indication: Product used for unknown indication
  26. ALLOPURINOL [Concomitant]
     Active Substance: ALLOPURINOL
     Indication: Product used for unknown indication

REACTIONS (26)
  - Aspiration [Unknown]
  - Off label use [Unknown]
  - Atelectasis [Unknown]
  - Myelodysplastic syndrome with excess blasts [Unknown]
  - Feeling abnormal [Unknown]
  - Skin irritation [Unknown]
  - Back pain [Unknown]
  - Lumbar vertebral fracture [Unknown]
  - Anaemia [Unknown]
  - Off label use [Unknown]
  - Weight decreased [Unknown]
  - Erythema [Unknown]
  - Pain [Recovered/Resolved]
  - Hypertension [Unknown]
  - Fall [Unknown]
  - Thrombocytosis [Unknown]
  - Cytopenia [Unknown]
  - Abnormal weight gain [Unknown]
  - Unevaluable event [Unknown]
  - Blister [Unknown]
  - Pneumonia [Unknown]
  - Rash pruritic [Unknown]
  - Lung consolidation [Unknown]
  - Full blood count decreased [Not Recovered/Not Resolved]
  - Recurrent cancer [Not Recovered/Not Resolved]
  - Fatigue [Unknown]

NARRATIVE: CASE EVENT DATE: 20220414
